FAERS Safety Report 6819558-8 (Version None)
Quarter: 2010Q2

REPORT INFORMATION
  Report Type: 
  Country: None (occurrence: None)
  Receive Date: 20100630
  Receipt Date: 20100615
  Transmission Date: 20101027
  Serious: Yes (Death, Hospitalization)
  Sender: FDA-Public Use
  Company Number: 2010000326

PATIENT
  Age: 70 Year
  Sex: Female
  Weight: 78 kg

DRUGS (22)
  1. ERLOTINIB (ERLOTINIB) (TABLET) (ERLOTINIB) [Suspect]
     Indication: PANCREATIC CARCINOMA
     Dosage: 100 MG, QD, ORAL
     Route: 048
     Dates: start: 20091118, end: 20091213
  2. IMC-A12 [Suspect]
     Indication: PANCREATIC CARCINOMA
     Dosage: 6 MG/KG, DAYS 1, 8, 15, 22), INTRAVENOUS
     Route: 042
     Dates: start: 20091118, end: 20091231
  3. GEMCITABINE [Suspect]
     Indication: PANCREATIC CARCINOMA
     Dosage: 1000 MG/M2, DAYS 1, 8, 15), INTRAVENOUS, 750 MG/M2, DAYS 1, 8, 15), INTRAVENOUS
     Route: 042
     Dates: start: 20091118
  4. GEMCITABINE [Suspect]
     Indication: PANCREATIC CARCINOMA
     Dosage: 1000 MG/M2, DAYS 1, 8, 15), INTRAVENOUS, 750 MG/M2, DAYS 1, 8, 15), INTRAVENOUS
     Route: 042
     Dates: start: 20091231
  5. PROCHLORPERAZINE MALEATE [Concomitant]
  6. OXYCODONE HCL [Concomitant]
  7. PAXIL [Concomitant]
  8. HYDROCHLOROTHIAZIDE [Concomitant]
  9. DOCUSATE SODIUM (DOCUSATE SODIUM) [Concomitant]
  10. MIRALAX [Concomitant]
  11. SENNA (SENNA) [Concomitant]
  12. ALLOPURINOL [Concomitant]
  13. METOPROLOL SUCCINATE [Concomitant]
  14. LACTULOSE [Concomitant]
  15. PANTOPRAZOLE SODIUM [Concomitant]
  16. LORAZEPAM [Concomitant]
  17. ACYCLOVIR [Concomitant]
  18. NYSTATIN [Concomitant]
  19. MULTIVITAMIN [Concomitant]
  20. MORPHINE [Concomitant]
  21. DOXYCYCLINE [Concomitant]
  22. INSULIN (INSULIN) [Concomitant]

REACTIONS (26)
  - BLOOD CREATINE PHOSPHOKINASE MB INCREASED [None]
  - BLOOD CREATININE INCREASED [None]
  - BLOOD GLUCOSE INCREASED [None]
  - BLOOD SODIUM DECREASED [None]
  - BLOOD UREA INCREASED [None]
  - BRAIN NATRIURETIC PEPTIDE INCREASED [None]
  - BUNDLE BRANCH BLOCK RIGHT [None]
  - DIARRHOEA [None]
  - DISORIENTATION [None]
  - DIZZINESS [None]
  - EJECTION FRACTION DECREASED [None]
  - ELECTROCARDIOGRAM T WAVE INVERSION [None]
  - FALL [None]
  - GENERAL PHYSICAL HEALTH DETERIORATION [None]
  - HAEMATEMESIS [None]
  - HAEMOGLOBIN DECREASED [None]
  - HYPOTENSION [None]
  - LEFT VENTRICULAR HYPERTROPHY [None]
  - LETHARGY [None]
  - OCCULT BLOOD POSITIVE [None]
  - OXYGEN SATURATION DECREASED [None]
  - PLATELET COUNT DECREASED [None]
  - POSTICTAL STATE [None]
  - RENAL ATROPHY [None]
  - TACHYPNOEA [None]
  - TROPONIN I INCREASED [None]
